FAERS Safety Report 9177814 (Version 1)
Quarter: 2013Q1

REPORT INFORMATION
  Report Type: Report from Study
  Country: JP (occurrence: JP)
  Receive Date: 20130321
  Receipt Date: 20130321
  Transmission Date: 20140127
  Serious: Yes (Hospitalization)
  Sender: FDA-Public Use
  Company Number: PHHO2013JP001333

PATIENT
  Age: 35 Year
  Sex: Female
  Weight: 60 kg

DRUGS (1)
  1. SOM230 [Suspect]
     Indication: ACROMEGALY
     Dosage: 40 MG, QD
     Route: 058
     Dates: start: 20121228

REACTIONS (1)
  - Sudden hearing loss [Recovering/Resolving]
